FAERS Safety Report 9425658 (Version 1)
Quarter: 2013Q3

REPORT INFORMATION
  Report Type: Spontaneous
  Country: US (occurrence: US)
  Receive Date: 20130729
  Receipt Date: 20130729
  Transmission Date: 20140515
  Serious: No
  Sender: FDA-Public Use
  Company Number: US-009507513-1307USA015944

PATIENT
  Sex: Female

DRUGS (1)
  1. COPPERTONE SUNLESS TANNING GRADUAL TAN MOISTURIZING LOTION [Suspect]
     Indication: TANNING
     Dosage: UNK, UNKNOWN
     Route: 061

REACTIONS (5)
  - Dehydration [Unknown]
  - Pain of skin [Unknown]
  - Migraine [Unknown]
  - Feeling hot [Unknown]
  - Malaise [Unknown]
